FAERS Safety Report 6979069-6 (Version None)
Quarter: 2010Q3

REPORT INFORMATION
  Report Type: 
  Country: None (occurrence: None)
  Receive Date: 20100913
  Receipt Date: 20100903
  Transmission Date: 20110219
  Serious: Yes (Hospitalization)
  Sender: FDA-Public Use
  Company Number: US-ASTRAZENECA-2010SE41661

PATIENT
  Age: 82 Year
  Sex: Male
  Weight: 90.7 kg

DRUGS (2)
  1. ZOLADEX [Suspect]
     Indication: PROSTATE CANCER
     Route: 058
     Dates: start: 20100201
  2. PRILOSEC [Concomitant]

REACTIONS (5)
  - BRADYCARDIA [None]
  - DYSPNOEA [None]
  - HOT FLUSH [None]
  - ORTHOSTATIC HYPOTENSION [None]
  - SYNCOPE [None]
